FAERS Safety Report 6367841-5 (Version None)
Quarter: 2009Q3

REPORT INFORMATION
  Report Type: 
  Country: None (occurrence: None)
  Receive Date: 20090921
  Receipt Date: 20090911
  Transmission Date: 20100115
  Serious: Yes (Hospitalization)
  Sender: FDA-Public Use
  Company Number: US-ABBOTT-09P-163-0594596-00

PATIENT
  Sex: Male
  Weight: 102.15 kg

DRUGS (3)
  1. DEPAKOTE ER [Suspect]
     Indication: DRUG USE FOR UNKNOWN INDICATION
     Dates: start: 19950101
  2. DEPAKOTE ER [Suspect]
     Dates: start: 20070101
  3. CYLERT [Suspect]
     Indication: ATTENTION DEFICIT/HYPERACTIVITY DISORDER
     Route: 048
     Dates: start: 19930101, end: 19950101

REACTIONS (33)
  - ABDOMINAL PAIN UPPER [None]
  - ABNORMAL BEHAVIOUR [None]
  - AGGRESSION [None]
  - AGITATION [None]
  - ANGER [None]
  - ANHEDONIA [None]
  - BIPOLAR DISORDER [None]
  - BRAIN INJURY [None]
  - DEPRESSION [None]
  - DISTURBANCE IN SOCIAL BEHAVIOUR [None]
  - DRUG ADMINISTRATION ERROR [None]
  - EMOTIONAL DISORDER [None]
  - EUPHORIC MOOD [None]
  - FEAR [None]
  - FEELING ABNORMAL [None]
  - FRUSTRATION [None]
  - HEADACHE [None]
  - HOMELESS [None]
  - HOSPITALISATION [None]
  - ILL-DEFINED DISORDER [None]
  - INCORRECT DRUG ADMINISTRATION DURATION [None]
  - IRRITABILITY [None]
  - LOGORRHOEA [None]
  - LOSS OF EMPLOYMENT [None]
  - MALAISE [None]
  - NIGHTMARE [None]
  - PANIC ATTACK [None]
  - PARANOIA [None]
  - PSYCHOTIC DISORDER [None]
  - RASH [None]
  - SCHIZOAFFECTIVE DISORDER [None]
  - SUICIDE ATTEMPT [None]
  - UNEVALUABLE EVENT [None]
